FAERS Safety Report 22083368 (Version 3)
Quarter: 2024Q1

REPORT INFORMATION
  Report Type: Report from Study
  Country: US (occurrence: US)
  Receive Date: 20230310
  Receipt Date: 20240304
  Transmission Date: 20240410
  Serious: Yes (Hospitalization)
  Sender: FDA-Public Use
  Company Number: US-ABBVIE-4331590

PATIENT
  Sex: Female

DRUGS (5)
  1. RINVOQ [Suspect]
     Active Substance: UPADACITINIB
     Indication: Psoriatic arthropathy
     Dosage: UNKNOWN
     Route: 048
  2. RINVOQ [Suspect]
     Active Substance: UPADACITINIB
     Indication: Psoriatic arthropathy
     Route: 048
     Dates: start: 20220603
  3. METHOTREXATE [Concomitant]
     Active Substance: METHOTREXATE
     Indication: Product used for unknown indication
  4. GABAPENTIN [Concomitant]
     Active Substance: GABAPENTIN
     Indication: Product used for unknown indication
     Dosage: 400 MILLIGRAMS
  5. NEURAXIN [Concomitant]
     Indication: Product used for unknown indication

REACTIONS (23)
  - Nephrolithiasis [Unknown]
  - Nausea [Unknown]
  - Illness [Unknown]
  - Fall [Recovered/Resolved]
  - Blister infected [Unknown]
  - Back pain [Unknown]
  - Fall [Recovered/Resolved]
  - Bronchitis [Unknown]
  - Musculoskeletal disorder [Recovered/Resolved]
  - Dizziness [Unknown]
  - Pneumonia [Unknown]
  - Arthralgia [Unknown]
  - Mobility decreased [Unknown]
  - Lethargy [Unknown]
  - Unevaluable event [Recovering/Resolving]
  - Unevaluable event [Unknown]
  - Feeding disorder [Unknown]
  - Stent placement [Unknown]
  - Fatigue [Unknown]
  - Arthralgia [Unknown]
  - Pelvic pain [Unknown]
  - Balance disorder [Unknown]
  - Fall [Unknown]

NARRATIVE: CASE EVENT DATE: 20220101
